FAERS Safety Report 9493862 (Version 2)
Quarter: 2013Q3

REPORT INFORMATION
  Report Type: Report from Study
  Country: CA (occurrence: CA)
  Receive Date: 20130902
  Receipt Date: 20130916
  Transmission Date: 20140515
  Serious: Yes (Death, Hospitalization)
  Sender: FDA-Public Use
  Company Number: PHHY2013CA094921

PATIENT
  Age: 79 Year
  Sex: Female

DRUGS (16)
  1. ACLASTA [Suspect]
     Indication: OSTEOPOROSIS
     Dosage: ONCE A YEAR
     Route: 042
     Dates: start: 20090923
  2. ACLASTA [Suspect]
     Dosage: ONCE A YEAR
     Route: 042
     Dates: start: 20100922
  3. ACLASTA [Suspect]
     Dosage: ONCE A YEAR
     Route: 042
     Dates: start: 20110922
  4. COLACE [Concomitant]
     Dosage: UNK UKN, UNK
  5. CALCIUM [Concomitant]
     Dosage: UNK UKN, UNK
  6. EBIXA [Concomitant]
     Dosage: UNK UKN, UNK
  7. BISOPROLOL [Concomitant]
     Dosage: UNK UKN, UNK
  8. ARICEPT [Concomitant]
     Dosage: UNK UKN, UNK
  9. SYNTHROID [Concomitant]
     Dosage: UNK UKN, UNK
  10. ACETYLSALICYLIC ACID [Concomitant]
     Dosage: UNK UKN, UNK
  11. DESYREL [Concomitant]
     Dosage: UNK UKN, UNK
  12. CITALOPRAM [Concomitant]
     Dosage: UNK UKN, UNK
  13. FLOVENT [Concomitant]
     Dosage: UNK UKN, UNK
  14. VENTOLIN [Concomitant]
     Dosage: UNK UKN, UNK
  15. TRICYCLIC ANTIDEPRESSANTS [Concomitant]
     Dosage: UNK UKN, UNK
  16. ANTIARRHYTHMIC AGENTS [Concomitant]
     Dosage: UNK UKN, UNK

REACTIONS (3)
  - Myocardial infarction [Fatal]
  - Lung disorder [Fatal]
  - Dyspnoea [Fatal]
